FAERS Safety Report 5991605-5 (Version None)
Quarter: 2008Q4

REPORT INFORMATION
  Report Type: 
  Country: None (occurrence: None)
  Receive Date: 20081202
  Receipt Date: 20080115
  Transmission Date: 20090506
  Serious: Yes (Other)
  Sender: FDA-Public Use
  Company Number: WAES 0612USA04017

PATIENT
  Age: 59 Year
  Sex: Female
  Weight: 71.2147 kg

DRUGS (8)
  1. FOSAMAX [Suspect]
     Indication: OSTEOPENIA
     Dosage: 10 MG/DAILY/PO
     Route: 048
     Dates: start: 19991104, end: 20060116
  2. FOSAMAX [Suspect]
     Indication: OSTEOPOROSIS
     Dosage: 10 MG/DAILY/PO
     Route: 048
     Dates: start: 19991104, end: 20060116
  3. FOSAMAX [Suspect]
     Indication: OSTEOPENIA
     Dosage: 70 MG/PO
     Route: 048
  4. FOSAMAX [Suspect]
     Indication: OSTEOPOROSIS
     Dosage: 70 MG/PO
     Route: 048
  5. FOSAMAX PLUS D [Suspect]
     Indication: OSTEOPOROSIS
     Dosage: PO
     Route: 048
     Dates: start: 20060116
  6. EVISTA [Concomitant]
  7. SYNTHROID [Concomitant]
  8. ZOCOR [Concomitant]

REACTIONS (7)
  - CLOSTRIDIAL INFECTION [None]
  - FATIGUE [None]
  - GINGIVAL DISORDER [None]
  - LOOSE TOOTH [None]
  - OSTEONECROSIS [None]
  - RESORPTION BONE INCREASED [None]
  - WRIST FRACTURE [None]
